FAERS Safety Report 23680273 (Version 1)
Quarter: 2024Q1

REPORT INFORMATION
  Report Type: Spontaneous
  Country: NL (occurrence: NL)
  Receive Date: 20240327
  Receipt Date: 20240327
  Transmission Date: 20240409
  Serious: Yes (Hospitalization, Other)
  Sender: FDA-Public Use
  Company Number: NL-STRIDES ARCOLAB LIMITED-2024SP003549

PATIENT
  Age: 70 Year
  Sex: Male

DRUGS (9)
  1. PREDNISOLONE [Suspect]
     Active Substance: PREDNISOLONE
     Indication: Rheumatoid arthritis
     Dosage: 5 MILLIGRAM DAILY
     Route: 065
     Dates: start: 2021
  2. PREDNISOLONE [Suspect]
     Active Substance: PREDNISOLONE
     Dosage: 60 MILLIGRAM DAILY
     Route: 065
  3. PREDNISOLONE [Suspect]
     Active Substance: PREDNISOLONE
     Dosage: 20 MILLIGRAM DAILY
     Route: 065
  4. PREDNISOLONE [Suspect]
     Active Substance: PREDNISOLONE
     Dosage: 20MG
     Route: 065
  5. METHOTREXATE [Suspect]
     Active Substance: METHOTREXATE
     Indication: Rheumatoid arthritis
     Dosage: 10MG/WEEK
     Route: 065
  6. BCG VACCINE [Suspect]
     Active Substance: BCG VACCINE
     Indication: Bladder transitional cell carcinoma
     Dosage: UNK, ONCE A WEEK;BLADDER INSTILLATIONS OF BCG WEEKLY FOR 6?WEEKS  FROM MAR?2020
     Route: 043
     Dates: start: 202003
  7. BCG VACCINE [Suspect]
     Active Substance: BCG VACCINE
     Dosage: UNK; FURTHER BCG THREE-MONTHLY ADMINISTRATIONS FOR 3?YEARS
     Route: 043
     Dates: start: 202003
  8. LEFLUNOMIDE [Suspect]
     Active Substance: LEFLUNOMIDE
     Indication: Rheumatoid arthritis
     Dosage: UNK
     Route: 065
     Dates: start: 2021
  9. HYDROXYCHLOROQUINE [Suspect]
     Active Substance: HYDROXYCHLOROQUINE
     Indication: Rheumatoid arthritis
     Dosage: 400MG/DAY
     Route: 065

REACTIONS (14)
  - Rheumatoid arthritis [Unknown]
  - Drug ineffective [Unknown]
  - Disseminated Bacillus Calmette-Guerin infection [Recovered/Resolved]
  - Meningitis listeria [Recovered/Resolved]
  - Listeriosis [Recovered/Resolved]
  - Urinary tract infection [Recovered/Resolved]
  - Cellulitis [Recovered/Resolved]
  - Herpes simplex [Recovered/Resolved]
  - Oropharyngeal candidiasis [Recovered/Resolved]
  - Arthritis infective [Recovered/Resolved]
  - Device related infection [Recovered/Resolved]
  - Infection [Recovered/Resolved]
  - Subcutaneous abscess [Recovered/Resolved]
  - Tuberculosis [Recovered/Resolved]

NARRATIVE: CASE EVENT DATE: 20210101
